FAERS Safety Report 8080512-2 (Version None)
Quarter: 2012Q1

REPORT INFORMATION
  Report Type: 
  Country: None (occurrence: None)
  Receive Date: 20120130
  Receipt Date: 20120118
  Transmission Date: 20120608
  Serious: Yes (Other)
  Sender: FDA-Public Use
  Company Number: JP-PFIZER INC-2012014716

PATIENT
  Age: 72 Year
  Sex: Female

DRUGS (1)
  1. METHYLPREDNISOLONE [Suspect]
     Indication: EYE DISORDER
     Dosage: 1000 MG/DAY

REACTIONS (3)
  - AGITATION [None]
  - RESTLESSNESS [None]
  - DELIRIUM [None]
